FAERS Safety Report 16957092 (Version 3)
Quarter: 2020Q1

REPORT INFORMATION
  Report Type: Spontaneous
  Country: BR (occurrence: BR)
  Receive Date: 20191024
  Receipt Date: 20200109
  Transmission Date: 20200409
  Serious: Yes (Other)
  Sender: FDA-Public Use
  Company Number: BR-SA-2019SA289325

PATIENT
  Age: 6 Year
  Sex: Male
  Weight: 50 kg

DRUGS (2)
  1. ALLEGRA [Suspect]
     Active Substance: FEXOFENADINE HYDROCHLORIDE
     Indication: RHINITIS
     Dosage: 5 ML TO 7 ML,  Q12H
     Route: 048
  2. ALLEGRA [Suspect]
     Active Substance: FEXOFENADINE HYDROCHLORIDE
     Indication: BRONCHITIS
     Dosage: 5 ML, Q12H
     Route: 048
     Dates: start: 2018, end: 20191006

REACTIONS (10)
  - Soft tissue necrosis [Recovering/Resolving]
  - Disease recurrence [Recovering/Resolving]
  - Scar [Recovering/Resolving]
  - Skin lesion [Recovered/Resolved]
  - Extra dose administered [Unknown]
  - Skin burning sensation [Recovering/Resolving]
  - Blister [Recovering/Resolving]
  - Condition aggravated [Recovering/Resolving]
  - Erythema [Recovering/Resolving]
  - Product use in unapproved indication [Unknown]

NARRATIVE: CASE EVENT DATE: 2018
